FAERS Safety Report 4472709-5 (Version None)
Quarter: 2004Q4

REPORT INFORMATION
  Report Type: 
  Country: None (occurrence: None)
  Receive Date: 20041012
  Receipt Date: 20041012
  Transmission Date: 20050328
  Serious: Yes (Life-Threatening, Hospitalization)
  Sender: FDA-Public Use
  Company Number: None

PATIENT
  Age: 54 Year
  Sex: Male
  Weight: 66 kg

DRUGS (6)
  1. LISINOPRIL [Suspect]
     Dosage: 20 MG PO DAILY
     Route: 048
  2. FAMOTIDINE [Suspect]
     Dosage: 20 MG IV BID
     Route: 042
  3. NIFEDIPINE [Concomitant]
  4. LAMIVUDINE [Concomitant]
  5. STAVUDINE [Concomitant]
  6. INDINAVIR [Concomitant]

REACTIONS (4)
  - ANGIONEUROTIC OEDEMA [None]
  - BLOOD PRESSURE INCREASED [None]
  - DYSPNOEA [None]
  - LUNG INFILTRATION [None]
